FAERS Safety Report 7583852-6 (Version None)
Quarter: 2011Q2

REPORT INFORMATION
  Report Type: 
  Country: None (occurrence: None)
  Receive Date: 20110630
  Receipt Date: 20110620
  Transmission Date: 20111010
  Serious: Yes (Hospitalization, Other)
  Sender: FDA-Public Use
  Company Number: JP-JNJFOC-20110600660

PATIENT
  Age: 73 Year
  Sex: Female

DRUGS (5)
  1. REMICADE [Suspect]
     Indication: PYODERMA GANGRENOSUM
     Route: 042
     Dates: start: 20050401
  2. PREDNISOLONE [Concomitant]
     Indication: PYODERMA GANGRENOSUM
     Route: 065
  3. CYCLOSPORINE [Concomitant]
     Route: 065
  4. PREDNISOLONE [Concomitant]
     Route: 065
     Dates: start: 20090901
  5. CYCLOSPORINE [Concomitant]
     Indication: PYODERMA GANGRENOSUM
     Route: 065
     Dates: start: 20090901

REACTIONS (4)
  - INFLAMMATORY BOWEL DISEASE [None]
  - PYODERMA GANGRENOSUM [None]
  - INFUSION RELATED REACTION [None]
  - BREAST CANCER [None]
